FAERS Safety Report 4634633-4 (Version None)
Quarter: 2005Q2

REPORT INFORMATION
  Report Type: 
  Country: None (occurrence: None)
  Receive Date: 20050411
  Receipt Date: 20050325
  Transmission Date: 20051028
  Serious: Yes (Hospitalization, Disabling)
  Sender: FDA-Public Use
  Company Number: CERZ-10837

PATIENT
  Age: 22 Year
  Sex: Male
  Weight: 36.8 kg

DRUGS (2)
  1. CEREZYME [Suspect]
     Indication: GAUCHER'S DISEASE
     Dosage: 90 U/KG Q2WKS IV
     Route: 042
  2. CEREZYME [Suspect]
     Indication: GAUCHER'S DISEASE
     Dosage: 60 U/KG Q2WKS IV
     Route: 042
     Dates: start: 20000120

REACTIONS (34)
  - ALPHA 1 GLOBULIN INCREASED [None]
  - ALPHA 2 GLOBULIN INCREASED [None]
  - ANAEMIA [None]
  - ASTHENIA [None]
  - ATRIAL HYPERTROPHY [None]
  - BLOOD ALBUMIN DECREASED [None]
  - BLOOD IMMUNOGLOBULIN A INCREASED [None]
  - BLOOD IMMUNOGLOBULIN G INCREASED [None]
  - CARDIAC FAILURE [None]
  - CARDIOMEGALY [None]
  - COMPLEMENT FACTOR DECREASED [None]
  - DECREASED APPETITE [None]
  - DILATATION ATRIAL [None]
  - DILATATION VENTRICULAR [None]
  - DYSPNOEA [None]
  - ELECTROCARDIOGRAM QRS COMPLEX PROLONGED [None]
  - ELECTROPHORESIS PROTEIN ABNORMAL [None]
  - EXERCISE TOLERANCE DECREASED [None]
  - HAEMODIALYSIS [None]
  - HEPATITIS B ANTIBODY POSITIVE [None]
  - HEPATITIS C [None]
  - HYPERGAMMAGLOBULINAEMIA [None]
  - MITRAL VALVE INCOMPETENCE [None]
  - PALPITATIONS [None]
  - PERICARDIAL EFFUSION [None]
  - PLEURAL EFFUSION [None]
  - PULMONARY HYPERTENSION [None]
  - PULMONARY VALVE INCOMPETENCE [None]
  - RENAL FAILURE CHRONIC [None]
  - RENAL HAEMATOMA [None]
  - RENAL TUBULAR NECROSIS [None]
  - TRICUSPID VALVE INCOMPETENCE [None]
  - VENTRICULAR HYPERTROPHY [None]
  - VENTRICULAR HYPOKINESIA [None]
